FAERS Safety Report 11875535 (Version 1)
Quarter: 2015Q4

REPORT INFORMATION
  Report Type: Spontaneous
  Country: None (occurrence: None)
  Receive Date: 20151228
  Receipt Date: 20151228
  Transmission Date: 20160305
  Serious: Yes (Life-Threatening, Hospitalization, Other)
  Sender: FDA-Public Use
  Company Number: 2015SCPR015034

PATIENT
  Age: 7 Year
  Sex: Male

DRUGS (1)
  1. ZOLEDRONIC ACID (ZOLEDRONIC ACID) INJECTION, 0.05MG/ML [Suspect]
     Active Substance: ZOLEDRONIC ACID
     Indication: OSTEOPOROTIC FRACTURE
     Dosage: 0.013 MG/KG, INTRAVENOUS
     Route: 042

REACTIONS (7)
  - Metabolic acidosis [None]
  - Acute respiratory distress syndrome [None]
  - Pulmonary haemorrhage [None]
  - Abdominal distension [None]
  - Diarrhoea [None]
  - Systemic inflammatory response syndrome [None]
  - Product use issue [None]
